FAERS Safety Report 4277471-7 (Version None)
Quarter: 2004Q1

REPORT INFORMATION
  Report Type: 
  Country: None (occurrence: None)
  Receive Date: 20040121
  Receipt Date: 20040121
  Transmission Date: 20041129
  Serious: Yes (Life-Threatening, Hospitalization)
  Sender: FDA-Public Use
  Company Number: None

PATIENT
  Age: 53 Year
  Sex: Male
  Weight: 75 kg

DRUGS (11)
  1. LITHIUM CARBONATE [Suspect]
     Indication: BIPOLAR DISORDER
     Dosage: 1350 MG QHS ORAL
     Route: 048
     Dates: start: 20030331, end: 20031229
  2. CARBAMAZEPINE [Concomitant]
  3. HALDOL [Concomitant]
  4. SYNTHROID [Concomitant]
  5. DILTIAZEM [Concomitant]
  6. CLONIDINE [Concomitant]
  7. RANITIDINE [Concomitant]
  8. LORATADINE [Concomitant]
  9. CANDESARTAN [Concomitant]
  10. ATENOLOL [Concomitant]
  11. TRAZODONE HCL [Concomitant]

REACTIONS (7)
  - AGGRESSION [None]
  - CONFUSIONAL STATE [None]
  - DRUG LEVEL INCREASED [None]
  - FLUID INTAKE REDUCED [None]
  - INCOHERENT [None]
  - RENAL FAILURE ACUTE [None]
  - VIRAL INFECTION [None]
